FAERS Safety Report 18272471 (Version 1)
Quarter: 2020Q3

REPORT INFORMATION
  Report Type: Spontaneous
  Country: DE (occurrence: DE)
  Receive Date: 20200916
  Receipt Date: 20200916
  Transmission Date: 20201103
  Serious: Yes (Life-Threatening, Hospitalization)
  Sender: FDA-Public Use
  Company Number: DE-ACCORD-201182

PATIENT
  Age: 92 Year
  Sex: Female

DRUGS (14)
  1. TORASEMIDE [Suspect]
     Active Substance: TORSEMIDE
     Indication: PRODUCT USED FOR UNKNOWN INDICATION
     Dosage: 10 MG, 1?0?0?0, TABLETS
     Route: 048
  2. ACETYLSALICYLIC ACID [Concomitant]
     Active Substance: ASPIRIN
     Dosage: 100 MG, 1?0?0?0, TABLETS
     Route: 048
  3. CANDESARTAN. [Concomitant]
     Active Substance: CANDESARTAN
     Dosage: 16 MG, 1?0?1?0, TABLETS
     Route: 048
  4. OMEPRAZOLE. [Concomitant]
     Active Substance: OMEPRAZOLE
     Dosage: 20 MG, 1?0?0?0, CAPSULES
     Route: 048
  5. EZETIMIBE/SIMVASTATIN [Concomitant]
     Active Substance: EZETIMIBE\SIMVASTATIN
     Dosage: 10 20 MG, 0?0?0?1, TABLETS
     Route: 048
  6. AMLODIPINE [Concomitant]
     Active Substance: AMLODIPINE BESYLATE
     Dosage: 10 MG, 0?0?1?0, TABLETS
  7. INSULIN [Concomitant]
     Active Substance: INSULIN NOS
     Dosage: 25 75 IE, 18?0?12?0
     Route: 058
  8. SODIUM PICOSULFATE [Concomitant]
     Active Substance: SODIUM PICOSULFATE
     Dosage: 7.5 MG, 0?0?6?0, DROPS
     Route: 048
  9. METOPROLOL. [Suspect]
     Active Substance: METOPROLOL
     Indication: PRODUCT USED FOR UNKNOWN INDICATION
     Dosage: 47.5 MG, 2?0?1?0
     Route: 048
  10. NALOXONE HYDROCHLORIDE/TILIDINE HYDROCHLORIDE [Concomitant]
     Active Substance: NALOXONE HYDROCHLORIDE\TILIDINE HYDROCHLORIDE
     Dosage: 4 50 MG, 1?0?1?0, TABLETS
     Route: 048
  11. SITAGLIPTIN/SITAGLIPTIN PHOSPHATE [Concomitant]
     Active Substance: SITAGLIPTIN PHOSPHATE
     Dosage: 50 MG, 1?0?0?0, TABLETTEN
     Route: 048
  12. SPIRONOLACTONE. [Suspect]
     Active Substance: SPIRONOLACTONE
     Indication: PRODUCT USED FOR UNKNOWN INDICATION
     Dosage: 50 MG, 0.5?0?0?0
     Route: 048
  13. MOXONIDINE [Suspect]
     Active Substance: MOXONIDINE
     Indication: PRODUCT USED FOR UNKNOWN INDICATION
     Dosage: 0.2 MG, 1?0?0?1, TABLETS
     Route: 048
  14. OPIPRAMOL/OPIPRAMOL HYDROCHLORIDE [Concomitant]
     Active Substance: OPIPRAMOL\OPIPRAMOL HYDROCHLORIDE
     Dosage: 50 MG, 0?0?0.5?0, TABLETTEN
     Route: 048

REACTIONS (10)
  - Condition aggravated [Recovering/Resolving]
  - Hyponatraemia [Recovering/Resolving]
  - Electrolyte imbalance [Recovering/Resolving]
  - Arrhythmia [Recovering/Resolving]
  - Acute kidney injury [Recovering/Resolving]
  - Dizziness [Recovering/Resolving]
  - Bradycardia [Recovering/Resolving]
  - Malaise [Recovering/Resolving]
  - General physical health deterioration [Recovering/Resolving]
  - Dyspnoea [Recovering/Resolving]
